FAERS Safety Report 5915353-2 (Version None)
Quarter: 2008Q4

REPORT INFORMATION
  Report Type: 
  Country: None (occurrence: None)
  Receive Date: 20081010
  Receipt Date: 20081002
  Transmission Date: 20090506
  Serious: Yes (Other)
  Sender: FDA-Public Use
  Company Number: GR-ROCHE-589745

PATIENT
  Age: 69 Year
  Sex: Female

DRUGS (3)
  1. CAPECITABINE [Suspect]
     Indication: BREAST CANCER
     Route: 048
     Dates: start: 20040301
  2. CAPECITABINE [Suspect]
     Route: 048
  3. TRASTUZUMAB [Suspect]
     Indication: BREAST CANCER
     Dosage: THERAPY GIVEN EVERY 21 DAYS.
     Route: 065

REACTIONS (3)
  - BLOOD CHOLESTEROL INCREASED [None]
  - HYPERTRIGLYCERIDAEMIA [None]
  - PALMAR-PLANTAR ERYTHRODYSAESTHESIA SYNDROME [None]
